FAERS Safety Report 25854475 (Version 1)
Quarter: 2025Q3

REPORT INFORMATION
  Report Type: Spontaneous
  Country: IN (occurrence: IN)
  Receive Date: 20250927
  Receipt Date: 20250927
  Transmission Date: 20251021
  Serious: Yes (Other)
  Sender: MICRO LABS
  Company Number: IN-862174955-ML2025-04873

PATIENT
  Age: 23 Year
  Sex: Male

DRUGS (1)
  1. DEXAMETHASONE [Suspect]
     Active Substance: DEXAMETHASONE
     Indication: Dermatitis allergic
     Route: 030

REACTIONS (4)
  - Cushing^s syndrome [Unknown]
  - Intentional product misuse [Unknown]
  - Hypothalamic pituitary adrenal axis suppression [Unknown]
  - Body tinea [Unknown]
